FAERS Safety Report 7551529-9 (Version None)
Quarter: 2011Q2

REPORT INFORMATION
  Report Type: 
  Country: None (occurrence: None)
  Receive Date: 20110616
  Receipt Date: 20110607
  Transmission Date: 20111010
  Serious: Yes (Death)
  Sender: FDA-Public Use
  Company Number: US-BAXTER-2011BH018686

PATIENT
  Age: 56 Year
  Sex: Female
  Weight: 63 kg

DRUGS (4)
  1. DIANEAL [Suspect]
     Indication: PERITONEAL DIALYSIS
     Route: 033
     Dates: start: 20030612, end: 20110504
  2. DIANEAL [Suspect]
     Indication: PERITONEAL DIALYSIS
     Route: 033
     Dates: start: 20030612, end: 20110504
  3. DIANEAL [Suspect]
     Route: 033
     Dates: start: 20030612, end: 20110504
  4. DIANEAL [Suspect]
     Route: 033
     Dates: start: 20030612, end: 20110504

REACTIONS (2)
  - DEATH [None]
  - REFUSAL OF TREATMENT BY PATIENT [None]
